FAERS Safety Report 7743816-6 (Version None)
Quarter: 2011Q3

REPORT INFORMATION
  Report Type: 
  Country: None (occurrence: None)
  Receive Date: 20110909
  Receipt Date: 20110909
  Transmission Date: 20111222
  Serious: Yes (Disabling)
  Sender: FDA-Public Use
  Company Number: None

PATIENT
  Age: 79 Year
  Sex: Male
  Weight: 66.2252 kg

DRUGS (1)
  1. AVASTIN [Suspect]
     Indication: MACULAR DEGENERATION
     Dosage: 1 ML 1 INTRAVITREAL INJECTION
     Dates: start: 20110718

REACTIONS (2)
  - BLINDNESS UNILATERAL [None]
  - MACULAR HOLE [None]
